FAERS Safety Report 19994257 (Version 2)
Quarter: 2021Q4

REPORT INFORMATION
  Report Type: Spontaneous
  Country: US (occurrence: None)
  Receive Date: 20211026
  Receipt Date: 20211110
  Transmission Date: 20220303
  Serious: Yes (Other)
  Sender: FDA-Public Use
  Company Number: US-HIKMA PHARMACEUTICALS USA INC.-US-H14001-21-04539

PATIENT
  Age: 11 Year
  Sex: Female

DRUGS (10)
  1. AMIKACIN [Suspect]
     Active Substance: AMIKACIN
     Indication: Mycobacterium abscessus infection
     Dosage: THE FIRST INTRAVENOUS DESENSITIZATION PROTOCOL WAS A 17-STEP DOSE ESCALATING PROCEDURE DOUBLING THE
     Route: 042
  2. AMIKACIN [Suspect]
     Active Substance: AMIKACIN
     Dosage: UNKNOWN
     Route: 042
  3. AMIKACIN [Suspect]
     Active Substance: AMIKACIN
     Route: 042
  4. AZITHROMYCIN [Concomitant]
     Active Substance: AZITHROMYCIN
     Indication: Mycobacterium abscessus infection
     Dosage: UNKNOWN
     Route: 065
  5. LINEZOLID [Concomitant]
     Active Substance: LINEZOLID
     Indication: Mycobacterium abscessus infection
     Dosage: UNKNOWN
     Route: 065
  6. TIGECYCLINE [Concomitant]
     Active Substance: TIGECYCLINE
     Indication: Mycobacterium abscessus infection
     Dosage: UNKNOWN
     Route: 065
  7. DIPHENHYDRAMINE [Concomitant]
     Active Substance: DIPHENHYDRAMINE
     Indication: Product used for unknown indication
     Dosage: UNKNOWN
     Route: 065
  8. METHYLPREDNISOLONE [Concomitant]
     Active Substance: METHYLPREDNISOLONE
     Indication: Premedication
     Dosage: UNKNOWN
     Route: 065
  9. FAMOTIDINE [Concomitant]
     Active Substance: FAMOTIDINE
     Indication: Premedication
     Dosage: UNKNOWN
     Route: 065
  10. MONTELUKAST [Concomitant]
     Active Substance: MONTELUKAST SODIUM
     Indication: Premedication
     Dosage: UNKNOWN
     Route: 065

REACTIONS (5)
  - Pruritus [Unknown]
  - Rash erythematous [Unknown]
  - Throat tightness [Unknown]
  - Tachycardia [Unknown]
  - Drug hypersensitivity [Unknown]
